FAERS Safety Report 4771568-0 (Version None)
Quarter: 2005Q3

REPORT INFORMATION
  Report Type: 
  Country: None (occurrence: None)
  Receive Date: 20050914
  Receipt Date: 20050914
  Transmission Date: 20060218
  Serious: Yes (Other)
  Sender: FDA-Public Use
  Company Number: None

PATIENT
  Age: 50 Year
  Sex: Male
  Weight: 90.7194 kg

DRUGS (8)
  1. TRAMADOL HCL [Suspect]
     Indication: BACK PAIN
     Dosage: 50 MG 2 PO BID PRN
     Route: 048
     Dates: start: 20050101, end: 20050201
  2. TRAMADOL HCL [Suspect]
     Indication: BACK PAIN
     Dosage: 50 MG 2 PO BID PRN
     Route: 048
     Dates: start: 20050826, end: 20050901
  3. FLONASE [Concomitant]
  4. COLACE [Concomitant]
  5. ALLEGRA D [Concomitant]
  6. PREVACID [Concomitant]
  7. FLEXERIL [Concomitant]
  8. ATENOLOL [Concomitant]

REACTIONS (2)
  - DRUG EFFECT DECREASED [None]
  - THERAPEUTIC RESPONSE UNEXPECTED WITH DRUG SUBSTITUTION [None]
